FAERS Safety Report 4818964-0 (Version None)
Quarter: 2005Q4

REPORT INFORMATION
  Report Type: 
  Country: None (occurrence: None)
  Receive Date: 20051103
  Receipt Date: 20051005
  Transmission Date: 20060501
  Serious: Yes (Other)
  Sender: FDA-Public Use
  Company Number: AU-SOLVAY-00305003180

PATIENT
  Age: 681 Month
  Sex: Female
  Weight: 70 kg

DRUGS (2)
  1. THYROXINE [Concomitant]
     Indication: HYPOTHYROIDISM
     Dosage: DAILY DOSE: 100 MICROGRAM(S)
     Route: 065
  2. LUVOX [Suspect]
     Indication: DEPRESSION
     Dosage: DAILY DOSE: 50 MILLIGRAM(S)
     Route: 048
     Dates: start: 20020101, end: 20050701

REACTIONS (1)
  - LEUKOCYTOCLASTIC VASCULITIS [None]
